FAERS Safety Report 14096650 (Version 1)
Quarter: 2017Q4

REPORT INFORMATION
  Report Type: Spontaneous
  Country: US (occurrence: None)
  Receive Date: 20171016
  Receipt Date: 20171016
  Transmission Date: 20180321
  Serious: Yes (Hospitalization)
  Sender: FDA-Public Use
  Company Number: None

PATIENT
  Age: 89 Year
  Sex: Male

DRUGS (9)
  1. ZOCOR [Concomitant]
     Active Substance: SIMVASTATIN
  2. VITAMIN E [Concomitant]
     Active Substance: .ALPHA.-TOCOPHEROL
  3. CENTRIUM [Concomitant]
  4. LASIX [Concomitant]
     Active Substance: FUROSEMIDE
  5. OMEGA 3-6-9 [Concomitant]
     Active Substance: FISH OIL
  6. LUPRON DEPOT [Suspect]
     Active Substance: LEUPROLIDE ACETATE
     Indication: PROSTATE CANCER
     Dosage: 30MG Q 4 MONTHS IM
     Route: 030
     Dates: start: 20110117
  7. COREG [Concomitant]
     Active Substance: CARVEDILOL
  8. VITAMIN C [Concomitant]
     Active Substance: ASCORBIC ACID
  9. PRILOSEC [Concomitant]
     Active Substance: OMEPRAZOLE MAGNESIUM

REACTIONS (3)
  - Fall [None]
  - Hip fracture [None]
  - Drug dose omission [None]

NARRATIVE: CASE EVENT DATE: 20171002
